FAERS Safety Report 8220678-4 (Version None)
Quarter: 2012Q1

REPORT INFORMATION
  Report Type: 
  Country: None (occurrence: None)
  Receive Date: 20120320
  Receipt Date: 20120307
  Transmission Date: 20120608
  Serious: Yes (Hospitalization, Other)
  Sender: FDA-Public Use
  Company Number: GB-ELI_LILLY_AND_COMPANY-GB201203002546

PATIENT
  Age: 15 Year
  Sex: Female

DRUGS (3)
  1. SERTRALINE HYDROCHLORIDE [Concomitant]
     Indication: DEPRESSION
     Dosage: 50 MG, UNK
  2. RITALIN [Concomitant]
     Indication: ATTENTION DEFICIT/HYPERACTIVITY DISORDER
  3. STRATTERA [Suspect]
     Indication: ATTENTION DEFICIT/HYPERACTIVITY DISORDER

REACTIONS (7)
  - TREMOR [None]
  - CONVULSION [None]
  - ALTERED STATE OF CONSCIOUSNESS [None]
  - PETIT MAL EPILEPSY [None]
  - AMNESIA [None]
  - EPILEPSY [None]
  - LOSS OF CONSCIOUSNESS [None]
